FAERS Safety Report 9091713 (Version 1)
Quarter: 2013Q1

REPORT INFORMATION
  Report Type: Report from Study
  Country: US (occurrence: US)
  Receive Date: 20130218
  Receipt Date: 20130218
  Transmission Date: 20140127
  Serious: No
  Sender: FDA-Public Use
  Company Number: US-ABBOTT-12P-163-0968176-00

PATIENT
  Sex: Male
  Weight: 83.54 kg

DRUGS (4)
  1. SIMCOR 1000MG/20MG [Suspect]
     Indication: BLOOD TRIGLYCERIDES INCREASED
     Dosage: 100/20MG
     Dates: start: 200908
  2. SIMCOR 1000MG/20MG [Suspect]
     Indication: LOW DENSITY LIPOPROTEIN INCREASED
  3. SIMCOR 1000MG/20MG [Suspect]
     Indication: HIGH DENSITY LIPOPROTEIN DECREASED
  4. TICLO [Concomitant]
     Indication: ANTICOAGULANT THERAPY

REACTIONS (2)
  - Poor quality sleep [Not Recovered/Not Resolved]
  - Flushing [Not Recovered/Not Resolved]
